FAERS Safety Report 9425497 (Version 2)
Quarter: 2013Q3

REPORT INFORMATION
  Report Type: Spontaneous
  Country: US (occurrence: US)
  Receive Date: 20130729
  Receipt Date: 20130813
  Transmission Date: 20140515
  Serious: No
  Sender: FDA-Public Use
  Company Number: US-009507513-1307USA013625

PATIENT
  Age: 31 Year
  Sex: Male

DRUGS (2)
  1. DULERA [Suspect]
     Indication: ASTHMA
     Dosage: 1 PUFF, BID
     Route: 055
     Dates: start: 201211, end: 201305
  2. ALBUTEROL [Concomitant]
     Dosage: UNKNOWN

REACTIONS (7)
  - Type 2 diabetes mellitus [Unknown]
  - Blood glucose increased [Recovered/Resolved]
  - Anxiety [Recovered/Resolved]
  - Restlessness [Recovered/Resolved]
  - Tremor [Recovered/Resolved]
  - Hypertension [Recovered/Resolved]
  - Dizziness [Recovered/Resolved]
